FAERS Safety Report 4283718-3 (Version None)
Quarter: 2004Q1

REPORT INFORMATION
  Report Type: 
  Country: None (occurrence: None)
  Receive Date: 20040129
  Receipt Date: 20040129
  Transmission Date: 20041129
  Serious: Yes (Hospitalization)
  Sender: FDA-Public Use
  Company Number: None

PATIENT
  Age: 63 Year
  Sex: Female
  Weight: 145 kg

DRUGS (7)
  1. SUCCINYLCHOLINE CHLORIDE [Suspect]
     Indication: INDUCTION OF ANAESTHESIA
     Dosage: 140 MG IV X 1
     Route: 042
     Dates: start: 20030519
  2. METAMUCIL-2 [Concomitant]
  3. MOM [Concomitant]
  4. TYLENOL W/ CODEINE NO. 3 [Concomitant]
  5. IBUPROFEN [Concomitant]
  6. IRON [Concomitant]
  7. MULTI-VITAMIN [Concomitant]

REACTIONS (2)
  - CARDIO-RESPIRATORY ARREST [None]
  - MYOCARDIAL INFARCTION [None]
